FAERS Safety Report 22236423 (Version 1)
Quarter: 2023Q2

REPORT INFORMATION
  Report Type: Other
  Country: US (occurrence: None)
  Receive Date: 20230420
  Receipt Date: 20230420
  Transmission Date: 20230722
  Serious: No
  Sender: FDA-Public Use
  Company Number: US-ROCHE-3255972

PATIENT
  Sex: Female

DRUGS (5)
  1. BEVACIZUMAB [Suspect]
     Active Substance: BEVACIZUMAB
     Indication: Ovarian cancer
     Dosage: 9 CYCLES OF SYSTEMIC THERAPY FOLLOWED BY 6 CYCLES OF MAINTENANCE THERAPY
     Route: 065
  2. CARBOPLATIN [Suspect]
     Active Substance: CARBOPLATIN
     Indication: Ovarian cancer
     Dosage: 6 CYCLES LATER 9 CYCLES DURING SYSTEMIC THERAPY
     Route: 065
  3. PACLITAXEL [Suspect]
     Active Substance: PACLITAXEL
     Indication: Ovarian cancer
     Dosage: 6 CYCLES
     Route: 065
  4. DOXORUBICIN [Suspect]
     Active Substance: DOXORUBICIN
     Indication: Ovarian cancer
     Dosage: 9 CYCLES
     Route: 065
  5. OLAPARIB [Concomitant]
     Active Substance: OLAPARIB
     Indication: Ovarian cancer

REACTIONS (2)
  - Disease progression [Unknown]
  - Drug ineffective [Unknown]
